FAERS Safety Report 13644629 (Version 1)
Quarter: 2017Q2

REPORT INFORMATION
  Report Type: Spontaneous
  Country: US (occurrence: US)
  Receive Date: 20170612
  Receipt Date: 20170612
  Transmission Date: 20170830
  Serious: Yes (Other)
  Sender: FDA-Public Use
  Company Number: US-ROCHE-1264561

PATIENT
  Sex: Male

DRUGS (4)
  1. LORAZEPAM. [Concomitant]
     Active Substance: LORAZEPAM
     Route: 065
  2. ALLOPURINOL. [Concomitant]
     Active Substance: ALLOPURINOL
     Route: 065
  3. CARVEDILOL. [Concomitant]
     Active Substance: CARVEDILOL
     Route: 065
  4. XELODA [Suspect]
     Active Substance: CAPECITABINE
     Dosage: 5 TABS DAILY
     Route: 048
     Dates: start: 20130711, end: 20130801

REACTIONS (1)
  - Drug ineffective [Unknown]
